FAERS Safety Report 4703171-2 (Version None)
Quarter: 2005Q2

REPORT INFORMATION
  Report Type: 
  Country: None (occurrence: None)
  Receive Date: 20050629
  Receipt Date: 20050411
  Transmission Date: 20051028
  Serious: Yes (Other)
  Sender: FDA-Public Use
  Company Number: PHFR2005GB01479

PATIENT
  Age: 57 Year
  Sex: Male

DRUGS (2)
  1. ZOMETA [Suspect]
     Indication: MULTIPLE MYELOMA
     Dosage: 4MG MONTHLY
     Route: 042
     Dates: start: 20030310, end: 20050309
  2. FLEBOGAMMA [Concomitant]
     Indication: MULTIPLE MYELOMA
     Dosage: 20G/MONTH
     Route: 042
     Dates: start: 20020205

REACTIONS (5)
  - BONE DISORDER [None]
  - BONE SWELLING [None]
  - HYPERBARIC OXYGEN THERAPY [None]
  - OSTEONECROSIS [None]
  - WOUND DRAINAGE [None]
